FAERS Safety Report 16646739 (Version 1)
Quarter: 2019Q3

REPORT INFORMATION
  Report Type: Spontaneous
  Country: DE (occurrence: DE)
  Receive Date: 20190730
  Receipt Date: 20190730
  Transmission Date: 20191004
  Serious: Yes (Other)
  Sender: FDA-Public Use
  Company Number: DE-ROCHE-2361113

PATIENT
  Sex: Female

DRUGS (2)
  1. XOLAIR [Suspect]
     Active Substance: OMALIZUMAB
     Indication: ASTHMA
  2. XOLAIR [Suspect]
     Active Substance: OMALIZUMAB
     Indication: URTICARIA
     Dosage: 150 MG, UNK
     Route: 065
     Dates: start: 2014

REACTIONS (5)
  - Blood count abnormal [Not Recovered/Not Resolved]
  - Antibody test negative [Not Recovered/Not Resolved]
  - Antibody test positive [Not Recovered/Not Resolved]
  - Antiphospholipid antibodies positive [Not Recovered/Not Resolved]
  - Rheumatoid factor negative [Not Recovered/Not Resolved]

NARRATIVE: CASE EVENT DATE: 2018
